FAERS Safety Report 4645525-9 (Version None)
Quarter: 2005Q2

REPORT INFORMATION
  Report Type: 
  Country: None (occurrence: None)
  Receive Date: 20050425
  Receipt Date: 20050411
  Transmission Date: 20051028
  Serious: No
  Sender: FDA-Public Use
  Company Number: 2005PK00521

PATIENT
  Age: 86 Year
  Sex: Male

DRUGS (13)
  1. SEROQUEL [Suspect]
     Indication: DELUSION
     Dosage: 12.5 MG TID PO
     Route: 048
  2. SEROQUEL [Suspect]
     Indication: DEMENTIA
     Dosage: 12.5 MG TID PO
     Route: 048
  3. SEROQUEL [Suspect]
     Indication: RESTLESSNESS
     Dosage: 12.5 MG TID PO
     Route: 048
  4. SEROQUEL [Suspect]
     Indication: DELUSION
     Dosage: 50 MG DAILY PO
     Route: 048
     Dates: start: 20050228, end: 20050301
  5. SEROQUEL [Suspect]
     Indication: DEMENTIA
     Dosage: 50 MG DAILY PO
     Route: 048
     Dates: start: 20050228, end: 20050301
  6. SEROQUEL [Suspect]
     Indication: RESTLESSNESS
     Dosage: 50 MG DAILY PO
     Route: 048
     Dates: start: 20050228, end: 20050301
  7. DIGIMERCK [Concomitant]
  8. DELIX [Concomitant]
  9. DILATREND [Concomitant]
  10. ISOKET [Concomitant]
  11. CORVATON [Concomitant]
  12. FUROSEMIDE [Concomitant]
  13. ASPIRIN [Concomitant]

REACTIONS (2)
  - C-REACTIVE PROTEIN INCREASED [None]
  - ELECTROCARDIOGRAM PQ INTERVAL PROLONGED [None]
